FAERS Safety Report 20882745 (Version 1)
Quarter: 2022Q2

REPORT INFORMATION
  Report Type: Spontaneous
  Country: CH (occurrence: None)
  Receive Date: 20220527
  Receipt Date: 20220527
  Transmission Date: 20220721
  Serious: Yes (Hospitalization)
  Sender: FDA-Public Use
  Company Number: CH-ROCHE-3102325

PATIENT
  Age: 45 Year
  Sex: Female

DRUGS (13)
  1. RIVOTRIL [Suspect]
     Active Substance: CLONAZEPAM
     Indication: Trigeminal neuralgia
     Dosage: 0.5 MG TREE TIMES A DAY (0.5 MG 2-2-2 (3 MG/DAY) FROM APPROX. 18.12.2021 UNTIL PROBABLY)
     Route: 048
     Dates: start: 20211218, end: 20211228
  2. RIVOTRIL [Suspect]
     Active Substance: CLONAZEPAM
     Dosage: 0.5 MG, THREE TIMES DAY (0.5 MG 2-2-2 (3 MG/DAY) FROM APPROX. 18.12.2021 UNTIL PROBABLY)
     Route: 048
     Dates: start: 20211229
  3. PHENYTOIN [Suspect]
     Active Substance: PHENYTOIN
     Indication: Trigeminal neuralgia
     Dosage: 100 MG, TID (100 MG 1-1-1 SINCE UNKNOWN DATE UNTIL APPROX. 07.12.2021, RESTART A)
     Route: 048
     Dates: start: 20211207
  4. PHENYTOIN [Suspect]
     Active Substance: PHENYTOIN
     Dosage: 100 MG, TID (100 MG 1-1-1 SINCE UNKNOWN DATE UNTIL APPROX. 07.12.2021, RESTART A)
     Route: 048
     Dates: start: 20211215, end: 20211221
  5. PHENYTOIN [Suspect]
     Active Substance: PHENYTOIN
     Dosage: 100 MG, TID (100 MG 1-1-1 SINCE UNKNOWN DATE UNTIL APPROX. 07.12.2021, RESTART A)
     Route: 048
     Dates: start: 20211222, end: 20211228
  6. PHENYTOIN [Suspect]
     Active Substance: PHENYTOIN
     Dosage: 100 MG, TID
     Route: 048
     Dates: start: 20211230
  7. PREGABALIN [Concomitant]
     Active Substance: PREGABALIN
  8. CARBAMAZEPINE [Concomitant]
     Active Substance: CARBAMAZEPINE
  9. LAMOTRIGINE [Concomitant]
     Active Substance: LAMOTRIGINE
  10. LIORESAL [Concomitant]
     Active Substance: BACLOFEN
  11. ETHINYL ESTRADIOL\GESTODENE [Concomitant]
     Active Substance: ETHINYL ESTRADIOL\GESTODENE
  12. VITAMIN D3 [Concomitant]
     Active Substance: CHOLECALCIFEROL
  13. THIAMINE HYDROCHLORIDE [Concomitant]
     Active Substance: THIAMINE HYDROCHLORIDE

REACTIONS (7)
  - Toxicity to various agents [Recovered/Resolved]
  - Disturbance in attention [Recovered/Resolved]
  - Somnolence [Recovered/Resolved]
  - Nystagmus [Recovered/Resolved]
  - Dysarthria [Recovered/Resolved]
  - Myoclonus [Recovered/Resolved]
  - Off label use [Unknown]

NARRATIVE: CASE EVENT DATE: 20211218
